FAERS Safety Report 12907058 (Version 1)
Quarter: 2016Q4

REPORT INFORMATION
  Report Type: Report from Study
  Country: US (occurrence: US)
  Receive Date: 20161103
  Receipt Date: 20161103
  Transmission Date: 20170207
  Serious: No
  Sender: FDA-Public Use
  Company Number: US-AMGEN-USASL2016145194

PATIENT
  Age: 60 Year
  Sex: Female

DRUGS (1)
  1. ENBREL [Suspect]
     Active Substance: ETANERCEPT
     Indication: RHEUMATOID ARTHRITIS
     Dosage: 50 MG, QWK
     Route: 065
     Dates: start: 201609, end: 201610

REACTIONS (10)
  - Dyspnoea [Unknown]
  - Injection site rash [Unknown]
  - Injection site pruritus [Recovered/Resolved]
  - Injection site bruising [Recovering/Resolving]
  - Injection site erythema [Unknown]
  - Streptococcal infection [Unknown]
  - Hypersensitivity [Recovering/Resolving]
  - Injection site swelling [Unknown]
  - Injection site pain [Recovered/Resolved]
  - Injection site vesicles [Unknown]

NARRATIVE: CASE EVENT DATE: 2016
